FAERS Safety Report 9178490 (Version 1)
Quarter: 2012Q4

REPORT INFORMATION
  Report Type: 
  Country: US (occurrence: US)
  Receive Date: 20121029
  Receipt Date: 20121029
  Transmission Date: 20130627
  Serious: Yes (Other)
  Sender: FDA-Public Use
  Company Number: PHEH2012US021100

PATIENT
  Sex: Female

DRUGS (3)
  1. GILENYA [Suspect]
     Dosage: 0.5 mg, daily
     Route: 048
  2. MULTIVITAMIN [Concomitant]
  3. CLARITIN [Concomitant]
     Dosage: 10 mg, UNK

REACTIONS (1)
  - Blindness [Unknown]
